FAERS Safety Report 14011746 (Version 2)
Quarter: 2017Q4

REPORT INFORMATION
  Report Type: Spontaneous
  Country: US (occurrence: US)
  Receive Date: 20170926
  Receipt Date: 20171106
  Transmission Date: 20180321
  Serious: No
  Sender: FDA-Public Use
  Company Number: US-ASTRAZENECA-2017SE94724

PATIENT
  Age: 16082 Day
  Sex: Female
  Weight: 99.8 kg

DRUGS (4)
  1. SYMBICORT [Suspect]
     Active Substance: BUDESONIDE\FORMOTEROL FUMARATE DIHYDRATE
     Indication: ASTHMA
     Dosage: 80/4.5MCG, UNKNOWN FREQUENCY UNKNOWN
     Route: 055
     Dates: end: 2013
  2. SYMBICORT [Suspect]
     Active Substance: BUDESONIDE\FORMOTEROL FUMARATE DIHYDRATE
     Indication: CHRONIC OBSTRUCTIVE PULMONARY DISEASE
     Dosage: 80/4.5MCG, UNKNOWN FREQUENCY UNKNOWN
     Route: 055
     Dates: end: 2013
  3. SYMBICORT [Suspect]
     Active Substance: BUDESONIDE\FORMOTEROL FUMARATE DIHYDRATE
     Indication: CHRONIC OBSTRUCTIVE PULMONARY DISEASE
     Dosage: 160/4.5 MCG 1 PUFF, TWO TIMES A DAY AS NEEDED AS REQUIRED
     Route: 055
     Dates: start: 2013
  4. SYMBICORT [Suspect]
     Active Substance: BUDESONIDE\FORMOTEROL FUMARATE DIHYDRATE
     Indication: ASTHMA
     Dosage: 160/4.5 MCG 1 PUFF, TWO TIMES A DAY AS NEEDED AS REQUIRED
     Route: 055
     Dates: start: 2013

REACTIONS (4)
  - Chronic obstructive pulmonary disease [Unknown]
  - Bronchitis [Unknown]
  - Intentional product misuse [Unknown]
  - Product packaging quantity issue [Unknown]
